FAERS Safety Report 15621567 (Version 2)
Quarter: 2018Q4

REPORT INFORMATION
  Report Type: Spontaneous
  Country: AU (occurrence: AU)
  Receive Date: 20181115
  Receipt Date: 20181219
  Transmission Date: 20190205
  Serious: Yes (Other)
  Sender: FDA-Public Use
  Company Number: AU-NOVOPROD-632011

PATIENT
  Sex: Female

DRUGS (1)
  1. TRISEQUENS [Suspect]
     Active Substance: ESTRADIOL\NORETHINDRONE ACETATE
     Indication: MENOPAUSAL SYMPTOMS
     Dosage: UNK
     Route: 065
     Dates: start: 1999

REACTIONS (4)
  - Insomnia [Unknown]
  - Menopausal symptoms [Unknown]
  - Epilepsy [Not Recovered/Not Resolved]
  - Headache [Unknown]
